FAERS Safety Report 11129032 (Version 1)
Quarter: 2015Q2

REPORT INFORMATION
  Report Type: Report from Study
  Country: US (occurrence: US)
  Receive Date: 20150521
  Receipt Date: 20150521
  Transmission Date: 20150821
  Serious: Yes (Hospitalization, Congenital Anomaly)
  Sender: FDA-Public Use
  Company Number: US-ABBVIE-15K-163-1391910-00

PATIENT
  Age: 67 Year
  Sex: Female
  Weight: 47.67 kg

DRUGS (10)
  1. HUMIRA [Suspect]
     Active Substance: ADALIMUMAB
     Indication: PSORIATIC ARTHROPATHY
     Route: 058
     Dates: start: 2006, end: 2009
  2. ESTRADIOL. [Concomitant]
     Active Substance: ESTRADIOL
     Indication: HORMONE REPLACEMENT THERAPY
  3. REMICADE [Suspect]
     Active Substance: INFLIXIMAB
     Indication: PSORIATIC ARTHROPATHY
     Dosage: ONLY RECEIVED ONE DOSE
     Route: 065
  4. BUSPAR [Concomitant]
     Active Substance: BUSPIRONE HYDROCHLORIDE
     Indication: PRODUCT USED FOR UNKNOWN INDICATION
  5. ANTIPYRINE AND BENZOCAINE [Concomitant]
     Active Substance: ANTIPYRINE\BENZOCAINE
     Indication: HYPOTHYROIDISM
  6. HUMIRA [Suspect]
     Active Substance: ADALIMUMAB
     Route: 058
     Dates: start: 2010, end: 201301
  7. VANCOMYCIN [Suspect]
     Active Substance: VANCOMYCIN
     Indication: INFECTION
     Route: 065
     Dates: start: 2013
  8. PROGESTERONE. [Concomitant]
     Active Substance: PROGESTERONE
     Indication: HORMONE REPLACEMENT THERAPY
  9. HUMIRA [Suspect]
     Active Substance: ADALIMUMAB
     Route: 058
     Dates: start: 201409
  10. WELLBUTRIN [Concomitant]
     Active Substance: BUPROPION HYDROCHLORIDE
     Indication: PRODUCT USED FOR UNKNOWN INDICATION

REACTIONS (15)
  - Red man syndrome [Recovered/Resolved]
  - Vascular rupture [Unknown]
  - Fatigue [Recovered/Resolved]
  - Tenosynovitis [Recovered/Resolved]
  - Cellulitis [Recovered/Resolved]
  - Arthralgia [Recovered/Resolved]
  - Therapeutic response unexpected [Unknown]
  - Back pain [Recovering/Resolving]
  - Drug hypersensitivity [Unknown]
  - Retinal injury [Recovering/Resolving]
  - Stress [Recovered/Resolved]
  - Varicella [Recovered/Resolved]
  - Arthritis [Recovering/Resolving]
  - Joint swelling [Recovered/Resolved]
  - Abscess limb [Recovered/Resolved]

NARRATIVE: CASE EVENT DATE: 2013
